FAERS Safety Report 7800891-8 (Version None)
Quarter: 2011Q4

REPORT INFORMATION
  Report Type: 
  Country: None (occurrence: None)
  Receive Date: 20111006
  Receipt Date: 20110928
  Transmission Date: 20120403
  Serious: Yes (Hospitalization, Other)
  Sender: FDA-Public Use
  Company Number: US-MERCK-1106USA01963

PATIENT
  Age: 53 Year
  Sex: Female

DRUGS (3)
  1. CALCIUM (UNSPECIFIED) [Concomitant]
     Route: 065
     Dates: start: 19850101
  2. VITAMIN D (UNSPECIFIED) [Concomitant]
     Route: 065
     Dates: start: 19850101
  3. FOSAMAX [Suspect]
     Indication: OSTEOPOROSIS
     Route: 048
     Dates: start: 20070120, end: 20081101

REACTIONS (12)
  - BASAL CELL CARCINOMA [None]
  - ATROPHIC VULVOVAGINITIS [None]
  - BRAIN NEOPLASM [None]
  - GALLBLADDER DISORDER [None]
  - COLONIC POLYP [None]
  - INFECTION [None]
  - TREATMENT RELATED SECONDARY MALIGNANCY [None]
  - OSTEOPENIA [None]
  - FALL [None]
  - HIP FRACTURE [None]
  - NEOPLASM MALIGNANT [None]
  - VAGINAL DISCHARGE [None]
